FAERS Safety Report 22103695 (Version 5)
Quarter: 2023Q2

REPORT INFORMATION
  Report Type: Spontaneous
  Country: ES (occurrence: ES)
  Receive Date: 20230316
  Receipt Date: 20230531
  Transmission Date: 20230722
  Serious: Yes (Hospitalization)
  Sender: FDA-Public Use
  Company Number: ES-SA-2022SA379031

PATIENT
  Age: 60 Year
  Sex: Male
  Weight: 92.5 kg

DRUGS (43)
  1. DOCETAXEL [Suspect]
     Active Substance: DOCETAXEL
     Indication: Neoplasm
     Dosage: 75 MG/M2 (165 MG), EVERY 3 WEEKS
     Route: 042
     Dates: start: 20220720, end: 20220810
  2. DOCETAXEL [Suspect]
     Active Substance: DOCETAXEL
     Dosage: 56.2 MG/M2, EVERY 3 WEEKS
     Route: 042
     Dates: start: 20220907, end: 20221117
  3. DOCETAXEL [Suspect]
     Active Substance: DOCETAXEL
     Dosage: 165 MG, EVERY 3 WEEKS
     Dates: start: 20220720, end: 20220810
  4. MIRZOTAMAB CLEZUTOCLAX [Suspect]
     Active Substance: MIRZOTAMAB CLEZUTOCLAX
     Indication: Neoplasm
     Dosage: 1600 MG, EVERY 3 WEEKS
     Route: 042
     Dates: start: 20220720
  5. MIRZOTAMAB CLEZUTOCLAX [Suspect]
     Active Substance: MIRZOTAMAB CLEZUTOCLAX
     Dosage: 16 MG, EVERY 3 WEEKS
     Route: 042
     Dates: start: 20220720, end: 20230217
  6. MORPHINE SULFATE [Concomitant]
     Active Substance: MORPHINE SULFATE
     Indication: Back pain
     Dosage: 20 MG
     Route: 048
     Dates: start: 202107, end: 20220822
  7. MORPHINE SULFATE [Concomitant]
     Active Substance: MORPHINE SULFATE
     Dosage: 40 MG, 2X/DAY
     Route: 048
     Dates: start: 20211021, end: 20220822
  8. MORPHINE SULFATE [Concomitant]
     Active Substance: MORPHINE SULFATE
     Dosage: 40 MG, 2X/DAY (BID)
     Route: 048
     Dates: start: 20221217
  9. LACTULOSE [Concomitant]
     Active Substance: LACTULOSE
     Indication: Constipation
     Dosage: 10 G, 1X/DAY
     Route: 048
     Dates: start: 202201, end: 20220821
  10. ALMAGATE [Concomitant]
     Active Substance: ALMAGATE
     Indication: Prophylaxis
     Dosage: 500 MG, AS NEEDED
     Route: 048
     Dates: start: 20221217
  11. INDACATEROL [Concomitant]
     Active Substance: INDACATEROL
     Indication: Prophylaxis
     Dosage: UNK
     Route: 055
     Dates: start: 2020, end: 20220821
  12. INDACATEROL [Concomitant]
     Active Substance: INDACATEROL
     Dosage: 85 MG, DAILY
     Route: 055
     Dates: start: 20221217
  13. OMEPRAZOLE [Concomitant]
     Active Substance: OMEPRAZOLE
     Indication: Prophylaxis
     Dosage: 20 MG, 1X/DAY
     Route: 048
     Dates: start: 2020, end: 20220821
  14. OMEPRAZOLE [Concomitant]
     Active Substance: OMEPRAZOLE
     Dosage: 20 MG, 1X/DAY
     Route: 048
     Dates: start: 20221217
  15. METAMIZOLE [Concomitant]
     Active Substance: METAMIZOLE
     Indication: Back pain
     Dosage: 575 MG
     Route: 048
     Dates: start: 2021, end: 20220821
  16. METAMIZOLE [Concomitant]
     Active Substance: METAMIZOLE
     Dosage: 575 MG PRN
     Route: 048
     Dates: end: 20221217
  17. ASPIRIN [Concomitant]
     Active Substance: ASPIRIN
     Indication: Thrombosis prophylaxis
     Dosage: 100 MG, 1X/DAY
     Route: 048
     Dates: start: 2019, end: 20220821
  18. ASPIRIN [Concomitant]
     Active Substance: ASPIRIN
     Dosage: 100 MG, 1X/DAY
     Route: 048
     Dates: start: 20221217
  19. GLYCOPYRROLATE [Concomitant]
     Active Substance: GLYCOPYRROLATE
     Indication: Prophylaxis
     Dosage: 43 UG, 1X/DAY
     Route: 055
     Dates: start: 2020, end: 20220821
  20. BROMAZEPAM [Concomitant]
     Active Substance: BROMAZEPAM
     Indication: Insomnia
     Dosage: 1.5 MG
     Route: 048
     Dates: start: 202201, end: 20220821
  21. BROMAZEPAM [Concomitant]
     Active Substance: BROMAZEPAM
     Dosage: 1.5 MG
     Dates: start: 20221217
  22. ENALAPRIL MALEATE [Concomitant]
     Active Substance: ENALAPRIL MALEATE
     Indication: Hypertension
     Dosage: 20 MG
     Route: 048
     Dates: start: 2021, end: 20220821
  23. BROMAZEPAM CT [Concomitant]
     Indication: Insomnia
     Dosage: 1.5 MG
     Route: 048
     Dates: start: 202201, end: 20220821
  24. BROMAZEPAM CT [Concomitant]
     Dosage: 1.5 MG
     Route: 048
     Dates: start: 20221217
  25. FUROSEMIDE SODIUM [Concomitant]
     Active Substance: FUROSEMIDE SODIUM
     Indication: Prophylaxis
     Dosage: 40 MG, 1X/DAY
     Dates: start: 20221217
  26. INDACATEROL MALEATE [Concomitant]
     Active Substance: INDACATEROL MALEATE
     Indication: Prophylaxis
     Dosage: 85 UG, 1X/DAY
     Route: 055
     Dates: start: 2020, end: 20220821
  27. INDACATEROL MALEATE [Concomitant]
     Active Substance: INDACATEROL MALEATE
     Dosage: 85 UG, 1X/DAY
     Route: 055
     Dates: start: 20221217
  28. LACTULOSE-H [Concomitant]
     Indication: Constipation
     Dosage: 10 G, 1X/DAY
     Route: 048
     Dates: start: 202201, end: 20220821
  29. LACTULOSE-H [Concomitant]
     Dosage: 10 G, 1X/DAY
     Route: 048
     Dates: start: 20221217
  30. METAMIZOLE SODIUM [Concomitant]
     Active Substance: METAMIZOLE SODIUM
     Indication: Back pain
     Dosage: 575 MG
     Route: 048
     Dates: start: 2021, end: 20220821
  31. METAMIZOLE SODIUM [Concomitant]
     Active Substance: METAMIZOLE SODIUM
     Dosage: 575 MG, AS NEEDED
     Route: 048
     Dates: start: 20221217
  32. MORPHINE SULFATE GJU [Concomitant]
     Indication: Back pain
     Dosage: 20 MG
     Route: 048
     Dates: start: 202107, end: 20220822
  33. MORPHINE SULFATE GJU [Concomitant]
     Dosage: 40 MG, 2X/DAY
     Route: 048
     Dates: start: 20211021, end: 20220822
  34. MORPHINE SULFATE GJU [Concomitant]
     Dosage: 40 MG, 2X/DAY
     Route: 048
     Dates: start: 20221217
  35. OMEPRAZOLE SODIUM [Concomitant]
     Active Substance: OMEPRAZOLE SODIUM
     Indication: Prophylaxis
     Dosage: 20 MG, 1X/DAY
     Route: 048
     Dates: start: 2020, end: 20220821
  36. OMEPRAZOLE SODIUM [Concomitant]
     Active Substance: OMEPRAZOLE SODIUM
     Indication: Gastrointestinal disorder prophylaxis
     Dosage: 20 MG, 1X/DAY
     Route: 048
     Dates: start: 20221217
  37. ENALAPRIL MALEATE AND HYDROCHLOROTHIAZIDE [Concomitant]
     Active Substance: ENALAPRIL MALEATE\HYDROCHLOROTHIAZIDE
     Indication: Hypertension
     Dosage: 20 MG, 1X/DAY
     Dates: start: 20221217
  38. ALMAGATE SINIL [Concomitant]
     Indication: Prophylaxis
     Dosage: 500 MG, AS NEEDED
     Route: 048
     Dates: start: 20221217
  39. MORPHINE [Concomitant]
     Active Substance: MORPHINE
     Indication: Back pain
     Dosage: 20 MG, AS NEEDED
     Dates: start: 20221217
  40. ACETAMINOPHEN [Concomitant]
     Active Substance: ACETAMINOPHEN
     Indication: Back pain
     Dosage: 1000 MG, 3X/DAY (TID)
     Dates: start: 20230223
  41. MIRTAZAPINE [Concomitant]
     Active Substance: MIRTAZAPINE
     Indication: Insomnia
     Dosage: 30 MG, DAILY
     Dates: start: 20230223
  42. ENOXAPARIN [Concomitant]
     Active Substance: ENOXAPARIN
     Indication: Thrombosis prophylaxis
     Dosage: 40 MG, DAILY
     Dates: start: 20230223
  43. METOCLOPRAMIDE [Concomitant]
     Active Substance: METOCLOPRAMIDE
     Indication: Prophylaxis of nausea and vomiting
     Dosage: 10 MG
     Dates: start: 20230223, end: 20230223

REACTIONS (2)
  - Diarrhoea [Recovered/Resolved]
  - Pleural effusion [Recovered/Resolved]

NARRATIVE: CASE EVENT DATE: 20220822
